FAERS Safety Report 7442107-0 (Version None)
Quarter: 2011Q2

REPORT INFORMATION
  Report Type: 
  Country: None (occurrence: None)
  Receive Date: 20110420
  Receipt Date: 20110407
  Transmission Date: 20111010
  Serious: Yes (Life-Threatening, Hospitalization, Other)
  Sender: FDA-Public Use
  Company Number: 2011040061

PATIENT
  Age: 78 Year
  Sex: Female
  Weight: 64 kg

DRUGS (4)
  1. FUROSEMIDE [Suspect]
     Dosage: 40 MG (40 MG,1 IN 1 D), ORAL
     Route: 048
     Dates: start: 20101228, end: 20110115
  2. LISIPLUS AL (LISINOPRIL, HYDROCHLOROTHIAZIDE) [Suspect]
     Dosage: 20/12.5 MG (1 DOSAGE FORMS,1 IN 1 D), ORAL
     Route: 048
     Dates: start: 20100705, end: 20110115
  3. LISIPLUS AL (LISINOPRIL, HYDROCHLOROTHIAZIDE) [Suspect]
     Dosage: 20/12.5 MG (1 DOSAGE FORMS,1 IN 1 D), ORAL
     Route: 048
     Dates: end: 20100601
  4. TORSEMIDE [Suspect]
     Dosage: 20 MG (10 MG,2 IN 1 D), ORAL
     Route: 048
     Dates: start: 20100705, end: 20110115

REACTIONS (2)
  - RENAL FAILURE ACUTE [None]
  - DIALYSIS [None]
